FAERS Safety Report 5735040-3 (Version None)
Quarter: 2008Q2

REPORT INFORMATION
  Report Type: 
  Country: None (occurrence: None)
  Receive Date: 20080512
  Receipt Date: 20080505
  Transmission Date: 20081010
  Serious: Yes (Hospitalization)
  Sender: FDA-Public Use
  Company Number: ES-ROCHE-343898

PATIENT
  Sex: Female
  Weight: 53.3 kg

DRUGS (18)
  1. DACLIZUMAB [Suspect]
     Dosage: DOSAGE FORM: VIAL.
     Route: 042
     Dates: start: 20030719, end: 20030719
  2. DACLIZUMAB [Suspect]
     Dosage: DOSE REPORTED AS 1MG/KG= 55 MG - PATIENT RECEIVED FOUR DOSES, AS PER PROTOCOL.FREQUENCY: EVERY 14 D.
     Route: 042
     Dates: start: 20030801, end: 20030915
  3. MYCOPHENOLATE MOFETIL [Suspect]
     Route: 048
  4. MYCOPHENOLATE MOFETIL [Suspect]
     Route: 048
     Dates: start: 20031016
  5. MYCOPHENOLATE MOFETIL [Suspect]
     Route: 048
     Dates: start: 20040205
  6. TACROLIMUS [Suspect]
     Route: 048
     Dates: start: 20030719
  7. TACROLIMUS [Suspect]
     Route: 048
     Dates: start: 20031119
  8. PREDNISONE TAB [Suspect]
     Route: 048
     Dates: start: 20030722
  9. PREDNISONE TAB [Suspect]
     Route: 048
     Dates: start: 20031130
  10. PREDNISONE TAB [Suspect]
     Route: 048
     Dates: start: 20040115
  11. METHYLPREDNISOLONE [Suspect]
     Route: 042
     Dates: start: 20030719, end: 20030719
  12. METHYLPREDNISOLONE [Suspect]
     Route: 042
     Dates: start: 20030720, end: 20030721
  13. AUGMENTIN '125' [Concomitant]
     Route: 042
     Dates: start: 20030719, end: 20030720
  14. AUGMENTIN '125' [Concomitant]
     Route: 042
     Dates: start: 20030719, end: 20030720
  15. RANUBER [Concomitant]
     Route: 048
     Dates: start: 20030722
  16. BISOPROLOL FUMARATE [Concomitant]
     Route: 048
  17. FERO-GRADUMET [Concomitant]
     Route: 048
  18. OMEPRAZOLE [Concomitant]

REACTIONS (4)
  - PYELONEPHRITIS ACUTE [None]
  - PYREXIA [None]
  - RENAL ARTERY STENOSIS [None]
  - VARICELLA [None]
